FAERS Safety Report 6282252-9 (Version None)
Quarter: 2009Q3

REPORT INFORMATION
  Report Type: 
  Country: None (occurrence: None)
  Receive Date: 20090721
  Receipt Date: 20090721
  Transmission Date: 20100115
  Serious: No
  Sender: FDA-Public Use
  Company Number: None

PATIENT
  Sex: Female
  Weight: 56.246 kg

DRUGS (1)
  1. ZOLOFT [Suspect]
     Dosage: ONCE 1/2 QD

REACTIONS (1)
  - DRUG INEFFECTIVE [None]
